FAERS Safety Report 9337063 (Version 1)
Quarter: 2013Q2

REPORT INFORMATION
  Report Type: Spontaneous
  Country: AU (occurrence: AU)
  Receive Date: 20130607
  Receipt Date: 20130607
  Transmission Date: 20140414
  Serious: Yes (Hospitalization, Other)
  Sender: FDA-Public Use
  Company Number: AU-009507513-1306AUS000368

PATIENT
  Age: 49 Year
  Sex: Male

DRUGS (3)
  1. RIBAVIRIN [Suspect]
     Indication: LIVER DISORDER
     Dosage: 1200 MG, UNK
     Route: 048
     Dates: start: 20121123, end: 20121221
  2. PEGASYS [Suspect]
     Indication: LIVER DISORDER
     Dosage: 180 MICROGRAM, QW
     Route: 058
     Dates: start: 20121123, end: 20121221
  3. TELAPREVIR [Suspect]
     Dosage: 750 MG, Q8H
     Route: 048
     Dates: start: 20121123, end: 20121221

REACTIONS (4)
  - Hepatic failure [Unknown]
  - Diarrhoea [Recovered/Resolved]
  - Pyrexia [Recovered/Resolved]
  - Liver disorder [Recovering/Resolving]
